FAERS Safety Report 20972149 (Version 6)
Quarter: 2022Q4

REPORT INFORMATION
  Report Type: Spontaneous
  Country: US (occurrence: US)
  Receive Date: 20220616
  Receipt Date: 20221024
  Transmission Date: 20230112
  Serious: Yes (Hospitalization)
  Sender: FDA-Public Use
  Company Number: US-SA-SAC20220613001805

PATIENT
  Age: 10 Year
  Sex: Female

DRUGS (2)
  1. DUPIXENT [Suspect]
     Active Substance: DUPILUMAB
     Indication: Eczema
     Dosage: 2 DF, 1X
     Route: 058
     Dates: start: 20220518, end: 20220518
  2. DUPIXENT [Suspect]
     Active Substance: DUPILUMAB
     Indication: Dermatitis allergic
     Dosage: 200 MG, QOW
     Route: 058
     Dates: start: 202206

REACTIONS (12)
  - Hospitalisation [Unknown]
  - Dry skin [Not Recovered/Not Resolved]
  - Skin reaction [Unknown]
  - Swelling of eyelid [Unknown]
  - Vision blurred [Unknown]
  - Erythema [Unknown]
  - Eye swelling [Unknown]
  - Blepharitis [Unknown]
  - Eye irritation [Unknown]
  - Dermatitis allergic [Unknown]
  - Condition aggravated [Unknown]
  - Temperature intolerance [Unknown]

NARRATIVE: CASE EVENT DATE: 20220101
